FAERS Safety Report 5340589-1 (Version None)
Quarter: 2007Q2

REPORT INFORMATION
  Report Type: 
  Country: None (occurrence: None)
  Receive Date: 20070405
  Receipt Date: 20070129
  Transmission Date: 20071010
  Serious: No
  Sender: FDA-Public Use
  Company Number: US200701005859

PATIENT
  Age: 51 Year
  Sex: Female

DRUGS (3)
  1. CYMBALTA [Suspect]
     Indication: DEPRESSION
     Dosage: 60 MG, DAILY (1/D)
  2. ADOXA (DOXYCYCLINE) [Concomitant]
  3. MELOXICAM [Concomitant]

REACTIONS (3)
  - ARTHRITIS [None]
  - MENISCUS LESION [None]
  - SYNOVIAL CYST [None]
